FAERS Safety Report 8438787-3 (Version None)
Quarter: 2012Q2

REPORT INFORMATION
  Report Type: 
  Country: None (occurrence: None)
  Receive Date: 20120607
  Receipt Date: 20120522
  Transmission Date: 20120825
  Serious: Yes (Hospitalization)
  Sender: FDA-Public Use
  Company Number: DSA_57465_2012

PATIENT
  Sex: Male
  Weight: 94.8018 kg

DRUGS (4)
  1. CLOZARIL [Concomitant]
  2. ATIVAN [Suspect]
     Indication: PRODUCT USED FOR UNKNOWN INDICATION
     Dosage: (DF)
     Dates: start: 20120301, end: 20120301
  3. HALDOL [Suspect]
     Indication: PRODUCT USED FOR UNKNOWN INDICATION
     Dosage: (DF)
     Dates: start: 20120301, end: 20120301
  4. ZYPREXA [Suspect]
     Indication: PRODUCT USED FOR UNKNOWN INDICATION
     Dosage: (DF)
     Dates: start: 20120301, end: 20120301

REACTIONS (8)
  - INFLUENZA [None]
  - STARING [None]
  - AMNESIA [None]
  - URINARY TRACT DISORDER [None]
  - HYPERHIDROSIS [None]
  - BRONCHITIS [None]
  - WHITE BLOOD CELL COUNT INCREASED [None]
  - BALANCE DISORDER [None]
